FAERS Safety Report 9904129 (Version 2)
Quarter: 2014Q2

REPORT INFORMATION
  Report Type: Spontaneous
  Country: US (occurrence: US)
  Receive Date: 20140218
  Receipt Date: 20140508
  Transmission Date: 20141212
  Serious: No
  Sender: FDA-Public Use
  Company Number: US-BIOGENIDEC-2014BI013280

PATIENT
  Age: 58 Year
  Sex: Female

DRUGS (15)
  1. TECFIDERA [Suspect]
     Indication: MULTIPLE SCLEROSIS
     Route: 048
     Dates: start: 20140123
  2. TECFIDERA [Suspect]
     Indication: MULTIPLE SCLEROSIS
     Route: 048
     Dates: start: 20140219
  3. FLEXERIL [Concomitant]
  4. PROMETRIUM [Concomitant]
  5. POTASSIUM [Concomitant]
  6. NUVIGIL [Concomitant]
  7. VIVELLE-DOT [Concomitant]
  8. NEURONTIN [Concomitant]
  9. BACLOFEN [Concomitant]
  10. KLONOPIN [Concomitant]
  11. PROPRANOLOL HCI [Concomitant]
  12. BUSPIRONE HCL [Concomitant]
  13. HYDROCHTOROTHIAZIDE [Concomitant]
  14. PREVACID [Concomitant]
  15. NAMENDA [Concomitant]

REACTIONS (8)
  - Abdominal distension [Unknown]
  - Pyrexia [Unknown]
  - Headache [Unknown]
  - Flushing [Unknown]
  - Abdominal discomfort [Unknown]
  - Nausea [Unknown]
  - Hepatic enzyme increased [Unknown]
  - Abdominal pain upper [Unknown]
